FAERS Safety Report 4925858-9 (Version None)
Quarter: 2006Q1

REPORT INFORMATION
  Report Type: 
  Country: None (occurrence: None)
  Receive Date: 20060228
  Receipt Date: 20050401
  Transmission Date: 20060701
  Serious: No
  Sender: FDA-Public Use
  Company Number: US-GLAXOSMITHKLINE-A0552335A

PATIENT
  Age: 9 Year
  Sex: Male

DRUGS (1)
  1. LAMICTAL [Suspect]
     Indication: EPILEPSY
     Dosage: 12.5MG PER DAY
     Route: 048
     Dates: start: 20050301, end: 20050328

REACTIONS (2)
  - DYSPHAGIA [None]
  - TIC [None]
